FAERS Safety Report 23277712 (Version 1)
Quarter: 2023Q4

REPORT INFORMATION
  Report Type: Spontaneous
  Country: US (occurrence: None)
  Receive Date: 20231207
  Receipt Date: 20231207
  Transmission Date: 20240110
  Serious: Yes (Hospitalization, Other)
  Sender: FDA-Public Use
  Company Number: None

PATIENT
  Age: 9 Year
  Sex: Female
  Weight: 25.2 kg

DRUGS (1)
  1. GENOTROPIN [Suspect]
     Active Substance: SOMATROPIN
     Dates: start: 20211201, end: 20231206

REACTIONS (6)
  - Product availability issue [None]
  - Therapy interrupted [None]
  - Neoplasm [None]
  - Jaw cyst [None]
  - Jaw disorder [None]
  - Therapy cessation [None]

NARRATIVE: CASE EVENT DATE: 20231205
